FAERS Safety Report 9466657 (Version 1)
Quarter: 2013Q3

REPORT INFORMATION
  Report Type: Spontaneous
  Country: US (occurrence: US)
  Receive Date: 20130820
  Receipt Date: 20130820
  Transmission Date: 20140515
  Serious: Yes (Other)
  Sender: FDA-Public Use
  Company Number: US-BRISTOL-MYERS SQUIBB COMPANY-19194752

PATIENT
  Age: 66 Year
  Sex: Female

DRUGS (9)
  1. PRAVACHOL [Suspect]
     Dosage: 1DF: 20 UNITS NOS
  2. TIKOSYN [Suspect]
  3. ASPIRIN [Suspect]
     Dosage: 1DF: 81 UNITS NOS
  4. CITALOPRAM [Suspect]
  5. KLOR-CON [Suspect]
  6. LASIX [Suspect]
     Dosage: 1DF: 20 UNITS NOS
  7. OMEPRAZOLE [Suspect]
  8. PRADAXA [Suspect]
     Dosage: 150 UNITS NOS
  9. ZEBETA [Suspect]

REACTIONS (1)
  - Cardiac disorder [Unknown]
